FAERS Safety Report 17097646 (Version 1)
Quarter: 2019Q4

REPORT INFORMATION
  Report Type: Spontaneous
  Country: US (occurrence: US)
  Receive Date: 20191105
  Receipt Date: 20191105
  Transmission Date: 20200122
  Serious: No
  Sender: FDA-Public Use
  Company Number: None

PATIENT
  Sex: Female

DRUGS (1)
  1. BOTOX [Suspect]
     Active Substance: ONABOTULINUMTOXINA
     Indication: MIGRAINE WITHOUT AURA
     Dosage: ?          OTHER STRENGTH:200U/VL;OTHER DOSE:155 UNITS;OTHER FREQUENCY:EVERY 3 MONTHS; 155 UNITS?
     Route: 030
     Dates: start: 20151222, end: 20191019

REACTIONS (1)
  - Pruritus [None]
